FAERS Safety Report 6526853-9 (Version None)
Quarter: 2010Q1

REPORT INFORMATION
  Report Type: 
  Country: None (occurrence: None)
  Receive Date: 20100105
  Receipt Date: 20091222
  Transmission Date: 20100710
  Serious: Yes (Hospitalization)
  Sender: FDA-Public Use
  Company Number: PHHY2009MX58428

PATIENT
  Age: 62 Year
  Sex: Male

DRUGS (2)
  1. LAMISIL [Suspect]
     Indication: ONYCHOMYCOSIS
     Dosage: 1 TABLET PER DAY
     Route: 048
     Dates: start: 20091201
  2. INSULIN [Concomitant]
     Dosage: UNK

REACTIONS (3)
  - HYPERKERATOSIS [None]
  - INFECTION [None]
  - TOE AMPUTATION [None]
